FAERS Safety Report 10655711 (Version 2)
Quarter: 2015Q1

REPORT INFORMATION
  Report Type: Spontaneous
  Country: US (occurrence: US)
  Receive Date: 20141216
  Receipt Date: 20150113
  Transmission Date: 20150720
  Serious: No
  Sender: FDA-Public Use
  Company Number: US-PFIZER INC-2014337120

PATIENT
  Age: 62 Year
  Sex: Female
  Weight: 86 kg

DRUGS (3)
  1. FUROSEMIDE. [Concomitant]
     Active Substance: FUROSEMIDE
     Dosage: IF BLOOD PRESSURE IS DOWN BREAK IN HALF
     Route: 048
  2. METOPROLOL [Concomitant]
     Active Substance: METOPROLOL
     Dosage: 50 MG, 3X/DAY
     Route: 048
  3. DISOPYRAMIDE PHOSPHATE. [Suspect]
     Active Substance: DISOPYRAMIDE PHOSPHATE
     Indication: HEART RATE
     Dosage: UNK
     Route: 048

REACTIONS (2)
  - Heart rate irregular [Recovering/Resolving]
  - Drug ineffective [Unknown]

NARRATIVE: CASE EVENT DATE: 201410
